FAERS Safety Report 4291361-5 (Version None)
Quarter: 2004Q1

REPORT INFORMATION
  Report Type: 
  Country: None (occurrence: None)
  Receive Date: 20040206
  Receipt Date: 20040206
  Transmission Date: 20041129
  Serious: No
  Sender: FDA-Public Use
  Company Number: None

PATIENT
  Age: 33 Year
  Sex: Male
  Weight: 71 kg

DRUGS (2)
  1. HALOPERIDOL [Suspect]
     Dosage: 10 MG BID
     Dates: start: 20030801, end: 20031201
  2. ZIPRASIDONE 80 MG [Suspect]
     Dosage: 80 MG BID
     Dates: start: 20030801, end: 20031201

REACTIONS (4)
  - BLOOD CREATINE PHOSPHOKINASE INCREASED [None]
  - BODY TEMPERATURE INCREASED [None]
  - MUSCULOSKELETAL STIFFNESS [None]
  - NEUROLEPTIC MALIGNANT SYNDROME [None]
